FAERS Safety Report 6405099-9 (Version None)
Quarter: 2009Q4

REPORT INFORMATION
  Report Type: 
  Country: None (occurrence: None)
  Receive Date: 20091016
  Receipt Date: 20091016
  Transmission Date: 20100525
  Serious: Yes (Other)
  Sender: FDA-Public Use
  Company Number: None

PATIENT
  Sex: Male
  Weight: 87.0906 kg

DRUGS (2)
  1. ALPRAZOLAM [Suspect]
     Indication: ANXIETY DISORDER
     Dosage: 2 TO 3 TABS QHS PO
     Route: 048
     Dates: start: 20090801
  2. ALPRAZOLAM [Suspect]
     Indication: ANXIETY DISORDER
     Dosage: 2 TO 3 TABS QHS PO
     Route: 048
     Dates: start: 20091001

REACTIONS (1)
  - GASTRITIS [None]
